FAERS Safety Report 21949705 (Version 1)
Quarter: 2023Q1

REPORT INFORMATION
  Report Type: Spontaneous
  Country: GB (occurrence: None)
  Receive Date: 20230203
  Receipt Date: 20230203
  Transmission Date: 20230418
  Serious: Yes (Hospitalization)
  Sender: FDA-Public Use
  Company Number: 2023A023735

PATIENT
  Sex: Male

DRUGS (1)
  1. DAPAGLIFLOZIN [Suspect]
     Active Substance: DAPAGLIFLOZIN
     Indication: Cardiac failure

REACTIONS (1)
  - Pancreatitis [Recovering/Resolving]

NARRATIVE: CASE EVENT DATE: 20230123
